FAERS Safety Report 6057898-3 (Version None)
Quarter: 2009Q1

REPORT INFORMATION
  Report Type: 
  Country: None (occurrence: None)
  Receive Date: 20090126
  Receipt Date: 20090114
  Transmission Date: 20090719
  Serious: Yes (Other)
  Sender: FDA-Public Use
  Company Number: 148764

PATIENT
  Age: 5 Year

DRUGS (1)
  1. KETAMINE HYDROCHLORIDE [Suspect]
     Indication: SEDATIVE THERAPY

REACTIONS (2)
  - LARYNGOSPASM [None]
  - SALIVARY HYPERSECRETION [None]
